FAERS Safety Report 9446268 (Version 1)
Quarter: 2013Q3

REPORT INFORMATION
  Report Type: Spontaneous
  Country: US (occurrence: US)
  Receive Date: 20130807
  Receipt Date: 20130807
  Transmission Date: 20140515
  Serious: No
  Sender: FDA-Public Use
  Company Number: US-AMGEN-USASP2013047913

PATIENT
  Age: 57 Year
  Sex: Female

DRUGS (2)
  1. ENBREL [Suspect]
     Indication: RHEUMATOID ARTHRITIS
     Dosage: UNK
  2. FORTEO [Concomitant]
     Dosage: UNK

REACTIONS (2)
  - Arthritis [Not Recovered/Not Resolved]
  - Limb discomfort [Not Recovered/Not Resolved]
